FAERS Safety Report 9269256 (Version 1)
Quarter: 2013Q2

REPORT INFORMATION
  Report Type: Spontaneous
  Country: US (occurrence: US)
  Receive Date: 20130503
  Receipt Date: 20130503
  Transmission Date: 20140414
  Serious: No
  Sender: FDA-Public Use
  Company Number: US-PFIZER INC-2013133542

PATIENT
  Age: 66 Year
  Sex: Female
  Weight: 90.7 kg

DRUGS (13)
  1. LISINOPRIL [Suspect]
     Indication: BLOOD PRESSURE ABNORMAL
     Dosage: UNK
     Dates: start: 2002, end: 2013
  2. REVATIO [Suspect]
     Indication: PULMONARY HYPERTENSION
     Dosage: 20 MG, 3X/DAY
     Route: 048
     Dates: start: 2012
  3. LOSARTAN [Suspect]
     Indication: BLOOD PRESSURE ABNORMAL
     Dosage: 25 MG, 2X/DAY
     Dates: start: 2013
  4. KLOR-CON [Concomitant]
     Dosage: 10 MEQ, 1X/DAY
  5. FUROSEMIDE [Concomitant]
     Indication: ATRIAL FIBRILLATION
     Dosage: UNK, DAILY
  6. CYMBALTA [Concomitant]
     Indication: PAIN
     Dosage: 60 MG, DAILY
  7. CYMBALTA [Concomitant]
     Indication: DEPRESSION
  8. SOTALOL [Concomitant]
     Indication: ARRHYTHMIA
     Dosage: UNK, 3X/DAY
  9. CRESTOR [Concomitant]
     Indication: BLOOD CHOLESTEROL ABNORMAL
     Dosage: UNK
  10. LEVOTHYROXINE [Concomitant]
     Indication: HYPOTHYROIDISM
     Dosage: 0.112 MG, DAILY
  11. COUMADIN [Concomitant]
     Dosage: 3 MG FOUR TIMES A WEEK AND 4 MG THREE TIMES A WEEK
  12. AMBIEN [Concomitant]
     Dosage: 5 MG, DAILY AT NIGHT
  13. ATIVAN [Concomitant]
     Dosage: 2 MG, DAILY AT BEDTIME

REACTIONS (2)
  - Dizziness [Unknown]
  - Cough [Unknown]
